FAERS Safety Report 12049556 (Version 1)
Quarter: 2016Q1

REPORT INFORMATION
  Report Type: Spontaneous
  Country: US (occurrence: US)
  Receive Date: 20160209
  Receipt Date: 20160209
  Transmission Date: 20160526
  Serious: No
  Sender: FDA-Public Use
  Company Number: US-ABBVIE-15P-163-1420712-00

PATIENT

DRUGS (1)
  1. HUMIRA [Suspect]
     Active Substance: ADALIMUMAB
     Indication: PRODUCT USED FOR UNKNOWN INDICATION
     Route: 065

REACTIONS (11)
  - Skin disorder [Unknown]
  - Vertigo [Unknown]
  - Arthropathy [Unknown]
  - Migraine [Unknown]
  - Feeling abnormal [Unknown]
  - Malaise [Unknown]
  - Aphasia [Unknown]
  - Heart rate increased [Unknown]
  - Fatigue [Unknown]
  - Hypotension [Unknown]
  - Loss of consciousness [Unknown]
